FAERS Safety Report 4522656-5 (Version None)
Quarter: 2004Q4

REPORT INFORMATION
  Report Type: 
  Country: None (occurrence: None)
  Receive Date: 20041207
  Receipt Date: 20041123
  Transmission Date: 20050328
  Serious: Yes (Hospitalization)
  Sender: FDA-Public Use
  Company Number: 2004PK01782

PATIENT
  Age: 67 Year
  Sex: Male

DRUGS (6)
  1. IRESSA [Suspect]
     Indication: NON-SMALL CELL LUNG CANCER
     Dosage: 250 MG DAILY PO
     Route: 048
     Dates: start: 20040921
  2. PHENPROCOUMON [Concomitant]
  3. SALMETEROL [Concomitant]
  4. NIFEDIPINE [Concomitant]
  5. PANTOPRAZOLE [Concomitant]
  6. BISOPROLOL FUMARATE [Concomitant]

REACTIONS (3)
  - C-REACTIVE PROTEIN INCREASED [None]
  - CONDITION AGGRAVATED [None]
  - DEEP VEIN THROMBOSIS [None]
